FAERS Safety Report 6698709-2 (Version None)
Quarter: 2010Q2

REPORT INFORMATION
  Report Type: 
  Country: None (occurrence: None)
  Receive Date: 20100427
  Receipt Date: 20090928
  Transmission Date: 20101027
  Serious: No
  Sender: FDA-Public Use
  Company Number: US-ASTRAZENECA-2009SE16138

PATIENT
  Age: 27536 Day
  Sex: Female
  Weight: 77.1 kg

DRUGS (3)
  1. ZOMIG [Suspect]
     Route: 048
     Dates: start: 20090925
  2. CLONIDINE [Concomitant]
     Indication: IRRITABLE BOWEL SYNDROME
  3. LIPITOR [Concomitant]
     Indication: BLOOD CHOLESTEROL

REACTIONS (2)
  - DISCOMFORT [None]
  - LETHARGY [None]
